FAERS Safety Report 8416687-2 (Version None)
Quarter: 2012Q2

REPORT INFORMATION
  Report Type: 
  Country: None (occurrence: None)
  Receive Date: 20120323
  Receipt Date: 20110222
  Transmission Date: 20120825
  Serious: Yes (Other)
  Sender: FDA-Public Use
  Company Number: 163-21880-11023089

PATIENT
  Age: 64 Year
  Sex: Female
  Weight: 59.4212 kg

DRUGS (14)
  1. VALTREX [Concomitant]
  2. AREDIA [Concomitant]
  3. ZOCOR [Concomitant]
  4. LASIX [Concomitant]
  5. COUMADIN [Concomitant]
  6. NEXIUM [Concomitant]
  7. DONNATAL [Concomitant]
  8. REVLIMID [Suspect]
     Indication: MULTIPLE MYELOMA
     Dosage: 10 MG, 1 IN 1 D, PO ; 15 MG, DAILY FOR 14 DAYS, PO
     Route: 048
     Dates: start: 20110203
  9. REVLIMID [Suspect]
     Indication: MULTIPLE MYELOMA
     Dosage: 10 MG, 1 IN 1 D, PO ; 15 MG, DAILY FOR 14 DAYS, PO
     Route: 048
     Dates: start: 20110101
  10. DEXAMETHASONE [Concomitant]
  11. VELCADE [Concomitant]
  12. MULTIVITAMIN [Concomitant]
  13. ULTRAM [Concomitant]
  14. METOPROLOL TARTRATE [Concomitant]

REACTIONS (1)
  - HAEMATOCRIT DECREASED [None]
